FAERS Safety Report 6199282-8 (Version None)
Quarter: 2009Q2

REPORT INFORMATION
  Report Type: 
  Country: None (occurrence: None)
  Receive Date: 20090522
  Receipt Date: 20090520
  Transmission Date: 20091009
  Serious: Yes (Death, Life-Threatening, Hospitalization)
  Sender: FDA-Public Use
  Company Number: PHHO2008DE07770

PATIENT
  Sex: Male
  Weight: 81 kg

DRUGS (5)
  1. MYFORTIC [Suspect]
     Dosage: 720 MG, BID
     Route: 048
     Dates: start: 20080327, end: 20080626
  2. SANDIMMUNE [Suspect]
     Dosage: UNK
     Dates: start: 20080327, end: 20080626
  3. NO TREATMENT RECEIVED NOMED [Suspect]
     Indication: RENAL TRANSPLANT
     Dosage: UNK
     Route: 048
     Dates: start: 20080327
  4. SIMULECT [Concomitant]
     Indication: RENAL TRANSPLANT
     Dosage: UNK
     Route: 048
     Dates: start: 20080327
  5. DECORTIN [Concomitant]
     Indication: RENAL TRANSPLANT
     Dosage: UNK
     Route: 048
     Dates: start: 20080327, end: 20080626

REACTIONS (6)
  - ASTHENIA [None]
  - ATYPICAL MYCOBACTERIAL INFECTION [None]
  - BRONCHOSCOPY [None]
  - DYSPNOEA [None]
  - PNEUMONIA FUNGAL [None]
  - PYREXIA [None]
